FAERS Safety Report 6596360-6 (Version None)
Quarter: 2010Q1

REPORT INFORMATION
  Report Type: 
  Country: None (occurrence: None)
  Receive Date: 20100222
  Receipt Date: 20100222
  Transmission Date: 20100710
  Serious: Yes (Other)
  Sender: FDA-Public Use
  Company Number: None

PATIENT
  Age: 6 Year
  Sex: Female
  Weight: 21.36 kg

DRUGS (3)
  1. SIROLIMUS [Suspect]
     Indication: NEUROFIBROMATOSIS
     Dosage: 2.3 MG BID; 1.7 MG BID
     Dates: start: 20090909, end: 20091019
  2. SIROLIMUS [Suspect]
     Indication: NEUROFIBROMATOSIS
     Dosage: 2.3 MG BID; 1.7 MG BID
     Dates: start: 20091019, end: 20091211
  3. NEURONTIN [Concomitant]

REACTIONS (3)
  - DRUG INTOLERANCE [None]
  - HYPERTENSION [None]
  - LOW DENSITY LIPOPROTEIN INCREASED [None]
